FAERS Safety Report 7481048-X (Version None)
Quarter: 2011Q2

REPORT INFORMATION
  Report Type: 
  Country: None (occurrence: None)
  Receive Date: 20110516
  Receipt Date: 20081210
  Transmission Date: 20111010
  Serious: Yes (Death, Hospitalization, Other)
  Sender: FDA-Public Use
  Company Number: US-BAYER-200840564NA

PATIENT
  Age: 77 Year
  Sex: Male
  Weight: 64 kg

DRUGS (8)
  1. HEPARIN [Concomitant]
     Dosage: UNK
     Dates: start: 20061130
  2. FRESH FROZEN PLASMA [Concomitant]
     Dosage: TWO UNITS
     Dates: start: 20061130
  3. TRASYLOL [Suspect]
     Indication: CORONARY ARTERY BYPASS
     Dosage: LOADING DOSE OF 200 CC, THEN DRIP AT 50 CC/HOUR. PUMP PRIME 200ML WAS GIVEN
     Route: 042
     Dates: start: 20061130
  4. PROTAMINE SULFATE [Concomitant]
     Dosage: UNK
     Dates: start: 20061130
  5. TRASYLOL [Suspect]
     Indication: AORTIC VALVE REPLACEMENT
     Dosage: INITIAL TEST DOSE OF 1 ML
     Route: 042
     Dates: start: 20061130
  6. NITROGLYCERIN [Concomitant]
     Dosage: UNK
     Dates: start: 20061130
  7. DOBUTAMINE HYDROCHLORIDE [Concomitant]
     Dosage: 5MCG/KG/MIN
     Dates: start: 20061130
  8. RED BLOOD CELLS [Concomitant]
     Dosage: ONE UNIT
     Dates: start: 20061130

REACTIONS (8)
  - PAIN [None]
  - UNEVALUABLE EVENT [None]
  - RENAL FAILURE [None]
  - RENAL FAILURE ACUTE [None]
  - INJURY [None]
  - CARDIAC FAILURE CONGESTIVE [None]
  - EMOTIONAL DISTRESS [None]
  - ANXIETY [None]
